FAERS Safety Report 24206142 (Version 1)
Quarter: 2024Q3

REPORT INFORMATION
  Report Type: Spontaneous
  Country: ZA (occurrence: None)
  Receive Date: 20240813
  Receipt Date: 20240813
  Transmission Date: 20241016
  Serious: Yes (Life-Threatening, Hospitalization, Other)
  Sender: ASTRAZENECA
  Company Number: 2024A183390

PATIENT
  Age: 27759 Day
  Sex: Female

DRUGS (6)
  1. DAPAGLIFLOZIN PROPANEDIOL [Suspect]
     Active Substance: DAPAGLIFLOZIN PROPANEDIOL
     Indication: Type 2 diabetes mellitus
     Route: 048
  2. AMLODIPINE BESYLATE\PERINDOPRIL ARGININE [Concomitant]
     Active Substance: AMLODIPINE BESYLATE\PERINDOPRIL ARGININE
     Indication: Hypertension
  3. LIPOGEN [Concomitant]
     Indication: Blood cholesterol
  4. PANTOCID [Concomitant]
     Indication: Ulcer
  5. VILDAGLIPTIN [Concomitant]
     Active Substance: VILDAGLIPTIN
     Indication: Type 2 diabetes mellitus
  6. VAGIFEM [Concomitant]
     Active Substance: ESTRADIOL
     Indication: Hormone replacement therapy

REACTIONS (7)
  - Oxygen saturation decreased [Unknown]
  - Renal failure [Unknown]
  - Thrombosis [Unknown]
  - Respiration abnormal [Unknown]
  - Peripheral swelling [Unknown]
  - Blood glucose increased [Unknown]
  - Drug ineffective [Unknown]
